FAERS Safety Report 9719916 (Version 6)
Quarter: 2014Q1

REPORT INFORMATION
  Report Type: Spontaneous
  Country: US (occurrence: US)
  Receive Date: 20131128
  Receipt Date: 20140103
  Transmission Date: 20141002
  Serious: Yes (Other)
  Sender: FDA-Public Use
  Company Number: US-JNJFOC-20131115504

PATIENT
  Age: 75 Year
  Sex: Male
  Weight: 86.18 kg

DRUGS (7)
  1. XARELTO [Suspect]
     Indication: THROMBOSIS PROPHYLAXIS
     Route: 048
     Dates: start: 20131118
  2. XARELTO [Suspect]
     Indication: THROMBOSIS PROPHYLAXIS
     Dosage: 1ST DOSE AT 6.00 AM AND THE LAST DOSE WAS AT 6.00 AM
     Route: 048
     Dates: start: 20131113, end: 20131117
  3. XARELTO [Suspect]
     Indication: THROMBOSIS PROPHYLAXIS
     Route: 048
     Dates: start: 20131118
  4. XARELTO [Suspect]
     Indication: THROMBOSIS PROPHYLAXIS
     Dosage: 1ST DOSE AT 6.00 AM AND THE LAST DOSE WAS AT 6.00 AM
     Route: 048
     Dates: start: 20131113, end: 20131117
  5. XARELTO [Suspect]
     Indication: KNEE ARTHROPLASTY
     Route: 048
     Dates: start: 20131118
  6. XARELTO [Suspect]
     Indication: KNEE ARTHROPLASTY
     Dosage: 1ST DOSE AT 6.00 AM AND THE LAST DOSE WAS AT 6.00 AM
     Route: 048
     Dates: start: 20131113, end: 20131117
  7. OXYCODONE [Concomitant]
     Route: 048
     Dates: start: 20131112, end: 20131206

REACTIONS (1)
  - Haemarthrosis [Recovering/Resolving]
